FAERS Safety Report 5486111-0 (Version None)
Quarter: 2007Q4

REPORT INFORMATION
  Report Type: 
  Country: None (occurrence: None)
  Receive Date: 20071015
  Receipt Date: 20071004
  Transmission Date: 20080405
  Serious: Yes (Other)
  Sender: FDA-Public Use
  Company Number: US-PFIZER INC-2007063883

PATIENT
  Sex: Male
  Weight: 76.2 kg

DRUGS (4)
  1. NORVASC [Suspect]
     Indication: HYPERTENSION
     Route: 048
  2. ALISKIREN [Concomitant]
     Dosage: DAILY DOSE:300MG
  3. SYNTHROID [Concomitant]
     Dosage: DAILY DOSE:125MCG
  4. PREVACID [Concomitant]
     Dosage: DAILY DOSE:30MG

REACTIONS (1)
  - TUNNEL VISION [None]
